FAERS Safety Report 7774961-7 (Version None)
Quarter: 2011Q3

REPORT INFORMATION
  Report Type: 
  Country: None (occurrence: None)
  Receive Date: 20110923
  Receipt Date: 20110919
  Transmission Date: 20111222
  Serious: Yes (Other)
  Sender: FDA-Public Use
  Company Number: GXKR2011DE02839

PATIENT
  Age: 29 Year
  Sex: Female
  Weight: 66.5 kg

DRUGS (4)
  1. SERTRALINE HYDROCHLORIDE [Suspect]
     Indication: DEPRESSION
     Dosage: 150 MG/DAY (100-0-50) (GW 6.3 TO 40.4)
     Route: 048
     Dates: start: 20100512, end: 20110106
  2. PROMETHAZINE [Suspect]
     Indication: DEPRESSION
     Dosage: 60 MG/DAY (30-0-30); GW 0 TO 40.4)
     Route: 048
     Dates: start: 20100327, end: 20110106
  3. FOLIC ACID [Concomitant]
     Indication: PROPHYLAXIS OF NEURAL TUBE DEFECT
     Dosage: 0.4 MG/DAY; GW 0 TO 22.5)
     Route: 048
     Dates: start: 20100327, end: 20100903
  4. THYRONAJOD [Concomitant]
     Indication: HYPOTHYROIDISM
     Dosage: 150 UG, UNK
     Route: 048
     Dates: end: 20110106

REACTIONS (2)
  - PLACENTA PRAEVIA HAEMORRHAGE [None]
  - MATERNAL EXPOSURE DURING PREGNANCY [None]
